FAERS Safety Report 9387965 (Version 3)
Quarter: 2013Q4

REPORT INFORMATION
  Report Type: Spontaneous
  Country: BD (occurrence: None)
  Receive Date: 20130703
  Receipt Date: 20131016
  Transmission Date: 20140711
  Serious: Yes (Other)
  Sender: FDA-Public Use
  Company Number: BD-JNJFOC-20130611993

PATIENT
  Age: 57 Year
  Sex: Male

DRUGS (2)
  1. DACOGEN (DECITABINE) LYOPHILIZED POWDER [Suspect]
     Indication: PRODUCT USED FOR UNKNOWN INDICATION
     Route: 042
  2. DECITABINE (DECITABINE) LYOPHILIZED POWDER [Suspect]
     Indication: PRODUCT USED FOR UNKNOWN INDICATION
     Route: 042

REACTIONS (5)
  - Leukocytosis [None]
  - Thrombocytopenia [None]
  - Red blood cell count decreased [None]
  - Haemoglobin decreased [None]
  - Haematocrit decreased [None]
